FAERS Safety Report 21507384 (Version 1)
Quarter: 2022Q4

REPORT INFORMATION
  Report Type: Spontaneous
  Country: US (occurrence: None)
  Receive Date: 20221025
  Receipt Date: 20221025
  Transmission Date: 20230113
  Serious: Yes (Life-Threatening, Other)
  Sender: FDA-Public Use
  Company Number: None

PATIENT
  Age: 55 Year
  Sex: Female
  Weight: 58.97 kg

DRUGS (1)
  1. TRINTELLIX [Suspect]
     Active Substance: VORTIOXETINE HYDROBROMIDE
     Dosage: FREQUENCY : DAILY;?
     Route: 002

REACTIONS (14)
  - Product contamination [None]
  - Vomiting [None]
  - Fatigue [None]
  - Asthenia [None]
  - Dizziness [None]
  - Dyspnoea [None]
  - Heart rate increased [None]
  - Pallor [None]
  - Abdominal pain [None]
  - Abdominal pain upper [None]
  - Abdominal distension [None]
  - Pulmonary pain [None]
  - Musculoskeletal chest pain [None]
  - Red blood cell count increased [None]

NARRATIVE: CASE EVENT DATE: 20220711
